FAERS Safety Report 5483904-0 (Version None)
Quarter: 2007Q4

REPORT INFORMATION
  Report Type: 
  Country: None (occurrence: None)
  Receive Date: 20071009
  Receipt Date: 20071009
  Transmission Date: 20080405
  Serious: Yes (Hospitalization)
  Sender: FDA-Public Use
  Company Number: None

PATIENT
  Age: 80 Year
  Sex: Male

DRUGS (1)
  1. LINEZOLID [Suspect]
     Indication: CELLULITIS
     Dosage: 600MG BID PO
     Route: 048
     Dates: start: 20070606, end: 20070620

REACTIONS (1)
  - PANCYTOPENIA [None]
